FAERS Safety Report 21047459 (Version 3)
Quarter: 2022Q4

REPORT INFORMATION
  Report Type: Spontaneous
  Country: US (occurrence: US)
  Receive Date: 20220706
  Receipt Date: 20221027
  Transmission Date: 20230113
  Serious: No
  Sender: FDA-Public Use
  Company Number: US-drreddys-SPO/USA/22/0151884

PATIENT
  Age: 68 Year
  Sex: Female

DRUGS (2)
  1. OMEPRAZOLE MAGNESIUM [Suspect]
     Active Substance: OMEPRAZOLE MAGNESIUM
     Indication: Gastric disorder
     Dates: start: 20220607, end: 20220621
  2. OMEPRAZOLE MAGNESIUM [Suspect]
     Active Substance: OMEPRAZOLE MAGNESIUM
     Indication: Gastrooesophageal reflux disease
     Dates: start: 20220608, end: 20220628

REACTIONS (2)
  - Drug ineffective [Unknown]
  - Product quality issue [Unknown]
